FAERS Safety Report 6668318-X (Version None)
Quarter: 2010Q2

REPORT INFORMATION
  Report Type: 
  Country: None (occurrence: None)
  Receive Date: 20100406
  Receipt Date: 20100329
  Transmission Date: 20101027
  Serious: Yes (Life-Threatening, Hospitalization, Other)
  Sender: FDA-Public Use
  Company Number: FR-TYCO HEALTHCARE/MALLINCKRODT-T201000899

PATIENT
  Age: 39 Year

DRUGS (4)
  1. TRAMADOL HCL [Suspect]
     Dosage: 10 G
  2. HYDROXYZINE [Suspect]
     Dosage: 6 G
  3. GABAPENTIN [Suspect]
     Dosage: 1 GM
  4. CLONAZEPAM [Suspect]
     Dosage: 80 MG

REACTIONS (6)
  - BUNDLE BRANCH BLOCK RIGHT [None]
  - CARDIAC ARREST [None]
  - CARDIOGENIC SHOCK [None]
  - DRUG TOXICITY [None]
  - RENAL FAILURE ACUTE [None]
  - VENTRICULAR HYPOKINESIA [None]
